FAERS Safety Report 15727487 (Version 1)
Quarter: 2018Q4

REPORT INFORMATION
  Report Type: Spontaneous
  Country: US (occurrence: US)
  Receive Date: 20181217
  Receipt Date: 20181217
  Transmission Date: 20190205
  Serious: No
  Sender: FDA-Public Use
  Company Number: US-TEVA-824077USA

PATIENT
  Sex: Female

DRUGS (1)
  1. BUPROPION. [Suspect]
     Active Substance: BUPROPION
     Route: 065

REACTIONS (6)
  - Headache [Unknown]
  - Feeling abnormal [Unknown]
  - Alopecia [Unknown]
  - Urticaria [Unknown]
  - Pruritus [Unknown]
  - Weight increased [Unknown]
